FAERS Safety Report 9338908 (Version 2)
Quarter: 2013Q2

REPORT INFORMATION
  Report Type: Spontaneous
  Country: US (occurrence: None)
  Receive Date: 20130604
  Receipt Date: 20130607
  Transmission Date: 20140414
  Serious: Yes (Other)
  Sender: FDA-Public Use
  Company Number: 2013036225

PATIENT
  Sex: Male

DRUGS (1)
  1. FACTOR VIII (ANTIHAEMOPHILIC FACTOR) [Suspect]
     Indication: IMMUNE SYSTEM DISORDER

REACTIONS (9)
  - Pain [None]
  - Gait disturbance [None]
  - Wound secretion [None]
  - Post procedural complication [None]
  - Haemoglobin decreased [None]
  - Haemorrhage [None]
  - Procedural site reaction [None]
  - Swelling [None]
  - Haematoma [None]
